FAERS Safety Report 19969351 (Version 2)
Quarter: 2021Q4

REPORT INFORMATION
  Report Type: Spontaneous
  Country: US (occurrence: US)
  Receive Date: 20211019
  Receipt Date: 20211021
  Transmission Date: 20220303
  Serious: No
  Sender: FDA-Public Use
  Company Number: NVSC2021US238124

PATIENT
  Sex: Female

DRUGS (2)
  1. TRAVOPROST [Suspect]
     Active Substance: TRAVOPROST
     Indication: Intraocular pressure increased
     Route: 065
  2. TRAVATAN Z [Concomitant]
     Active Substance: TRAVOPROST
     Indication: Intraocular pressure test
     Route: 065

REACTIONS (1)
  - Drug ineffective [Unknown]
